FAERS Safety Report 13138081 (Version 7)
Quarter: 2019Q1

REPORT INFORMATION
  Report Type: Spontaneous
  Country: US (occurrence: US)
  Receive Date: 20170123
  Receipt Date: 20190115
  Transmission Date: 20190417
  Serious: Yes (Hospitalization, Other)
  Sender: FDA-Public Use
  Company Number: US-ASTRAZENECA-2017SE03317

PATIENT
  Age: 76 Year
  Sex: Female
  Weight: 117.9 kg

DRUGS (62)
  1. PROPOFOL. [Concomitant]
     Active Substance: PROPOFOL
     Dates: start: 20130722
  2. PREVACID [Suspect]
     Active Substance: LANSOPRAZOLE
     Indication: DYSPEPSIA
     Route: 065
     Dates: start: 20070921, end: 200912
  3. OXYCODONE/ACETAMINOPHEN [Concomitant]
     Active Substance: ACETAMINOPHEN\OXYCODONE HYDROCHLORIDE
     Indication: PAIN
     Dosage: 10-325 MG
     Route: 065
     Dates: start: 20130214
  4. FUROSEMIDE. [Concomitant]
     Active Substance: FUROSEMIDE
     Route: 065
  5. CELEXA [Concomitant]
     Active Substance: CITALOPRAM HYDROBROMIDE
  6. FLEXERIL [Concomitant]
     Active Substance: CYCLOBENZAPRINE HYDROCHLORIDE
     Dates: start: 20130703
  7. MORPHINE [Concomitant]
     Active Substance: MORPHINE
     Dates: start: 20130723
  8. NEXIUM [Suspect]
     Active Substance: ESOMEPRAZOLE MAGNESIUM
     Indication: DYSPEPSIA
     Route: 048
     Dates: start: 20120130
  9. SYNTHROID [Concomitant]
     Active Substance: LEVOTHYROXINE SODIUM
     Dosage: 100 MCG; DAILY
  10. JANUVIA [Concomitant]
     Active Substance: SITAGLIPTIN PHOSPHATE
  11. MULTIVITAMIN [Concomitant]
     Active Substance: VITAMINS
     Dosage: DAILY
     Dates: start: 20061106
  12. KETOROLAC [Concomitant]
     Active Substance: KETOROLAC\KETOROLAC TROMETHAMINE
     Dates: start: 20130331
  13. HYDROMORPHONE [Concomitant]
     Active Substance: HYDROMORPHONE
     Dates: start: 20130722
  14. FENTANYL. [Concomitant]
     Active Substance: FENTANYL
     Dates: start: 20130722
  15. EPHEDRINE. [Concomitant]
     Active Substance: EPHEDRINE
     Dates: start: 20130722
  16. NEXIUM [Suspect]
     Active Substance: ESOMEPRAZOLE MAGNESIUM
     Indication: DYSPEPSIA
     Route: 048
     Dates: start: 20100104
  17. PROTONIX [Concomitant]
     Active Substance: PANTOPRAZOLE SODIUM
     Route: 065
     Dates: start: 20130411
  18. LEVOTHYROXINE. [Concomitant]
     Active Substance: LEVOTHYROXINE
     Dosage: 150 MCG DAILY
  19. MELOXICAM. [Concomitant]
     Active Substance: MELOXICAM
     Dates: start: 20150727
  20. ATORVASTATIN [Concomitant]
     Active Substance: ATORVASTATIN
     Indication: BLOOD CHOLESTEROL INCREASED
     Route: 065
  21. ZOFRAN [Concomitant]
     Active Substance: ONDANSETRON HYDROCHLORIDE
  22. BACLOFEN. [Concomitant]
     Active Substance: BACLOFEN
  23. MORPHINE [Concomitant]
     Active Substance: MORPHINE
  24. TRAZODONE [Concomitant]
     Active Substance: TRAZODONE HYDROCHLORIDE
     Dosage: 100 MG AT A BEDTIME
  25. VITAMIN D3 [Concomitant]
     Active Substance: CHOLECALCIFEROL
     Dosage: 2000 UNIT
  26. METAXALONE. [Concomitant]
     Active Substance: METAXALONE
     Dates: start: 20130703
  27. ESTRING [Concomitant]
     Active Substance: ESTRADIOL
     Dates: start: 20130129
  28. ACYCLOVIR. [Concomitant]
     Active Substance: ACYCLOVIR
     Dates: start: 20150914
  29. MELATONIN [Concomitant]
     Active Substance: MELATONIN
     Dates: start: 20160428
  30. LEVOCETIRIZINE [Concomitant]
     Active Substance: LEVOCETIRIZINE
     Dates: start: 20151217
  31. TORADOL [Concomitant]
     Active Substance: KETOROLAC TROMETHAMINE
  32. LIDOCAINE. [Concomitant]
     Active Substance: LIDOCAINE
     Dates: start: 20130722
  33. AVANDIA [Concomitant]
     Active Substance: ROSIGLITAZONE MALEATE
     Dosage: 90.0MG UNKNOWN
     Route: 065
     Dates: start: 20130116
  34. CYCLOBENZAPRINE. [Concomitant]
     Active Substance: CYCLOBENZAPRINE
     Dosage: 10 MG INJECT 24 UNITS EVERY MORNING AND 16 UNITS EVERY
     Dates: start: 20130121
  35. CLONIDINE. [Concomitant]
     Active Substance: CLONIDINE
     Indication: BLOOD PRESSURE MEASUREMENT
     Route: 065
  36. PERCOCET [Concomitant]
     Active Substance: ACETAMINOPHEN\OXYCODONE HYDROCHLORIDE
     Dosage: 10-325 MG; EVERY 7 HOURS
  37. PROAIR HFA [Concomitant]
     Active Substance: ALBUTEROL SULFATE
     Dosage: 1-2 PUFFS; EVERY 4-6 HOURS
     Dates: start: 20130121
  38. POTASSIUM CHLORIDE. [Concomitant]
     Active Substance: POTASSIUM CHLORIDE
  39. ALBUTEROL. [Concomitant]
     Active Substance: ALBUTEROL
  40. NEXIUM [Suspect]
     Active Substance: ESOMEPRAZOLE MAGNESIUM
     Indication: DYSPEPSIA
     Dosage: GENERIC
     Route: 065
     Dates: start: 20130723
  41. NEXIUM [Suspect]
     Active Substance: ESOMEPRAZOLE MAGNESIUM
     Indication: DYSPEPSIA
     Dosage: ESOMEPRAZOLE GENERIC
     Route: 048
  42. GABAPENTIN. [Concomitant]
     Active Substance: GABAPENTIN
     Indication: DIABETIC NEPHROPATHY
     Dosage: 300 MG AT A BEDTIME
     Route: 065
  43. SKELAXIN [Concomitant]
     Active Substance: METAXALONE
     Dates: start: 20130121
  44. CITALOPRAM [Concomitant]
     Active Substance: CITALOPRAM HYDROBROMIDE
     Dates: start: 20150603
  45. NEXIUM [Suspect]
     Active Substance: ESOMEPRAZOLE MAGNESIUM
     Indication: DYSPEPSIA
     Route: 048
     Dates: start: 201001, end: 201501
  46. LEVOTHYROXINE. [Concomitant]
     Active Substance: LEVOTHYROXINE
     Route: 065
     Dates: start: 20130411
  47. MELOXICAM. [Concomitant]
     Active Substance: MELOXICAM
     Route: 065
     Dates: start: 20130411
  48. ATORVASTATIN [Concomitant]
     Active Substance: ATORVASTATIN
     Indication: BLOOD CHOLESTEROL INCREASED
  49. CLONIDINE. [Concomitant]
     Active Substance: CLONIDINE
  50. PROMETHAZINE [Concomitant]
     Active Substance: PROMETHAZINE\PROMETHAZINE HYDROCHLORIDE
  51. KEFLEX [Concomitant]
     Active Substance: CEPHALEXIN
  52. METFORMIN [Concomitant]
     Active Substance: METFORMIN HYDROCHLORIDE
  53. NOVOLIN [Concomitant]
     Active Substance: INSULIN HUMAN
     Dosage: 70/30 WITH 40 IN THE MORNING, 20 IN THE EVENING.
     Dates: start: 20120126
  54. HUMULIN NOS [Concomitant]
     Active Substance: INSULIN HUMAN
     Dosage: 70/30 U-100 INJECT 24 UNITS EVERY MORNING AND 16 UNITS EVERY EVENING
     Dates: start: 20130121
  55. AZITHROMYCIN ANHYDROUS. [Concomitant]
     Active Substance: AZITHROMYCIN ANHYDROUS
     Dates: start: 20140304
  56. ASPIRIN. [Concomitant]
     Active Substance: ASPIRIN
  57. PHENYLEPHRINE [Concomitant]
     Active Substance: PHENYLEPHRINE\PHENYLEPHRINE HYDROCHLORIDE
     Dates: start: 20130722
  58. FAMOTIDINE. [Concomitant]
     Active Substance: FAMOTIDINE
     Route: 065
     Dates: start: 2017
  59. HYDRALAZINE [Concomitant]
     Active Substance: HYDRALAZINE HYDROCHLORIDE
  60. HYDROCHLOROTHIAZIDE+LISINOPRIL [Concomitant]
     Dosage: 20/25 MG DAILY.
     Route: 065
     Dates: start: 20130411
  61. AVINZA [Concomitant]
     Active Substance: MORPHINE SULFATE
     Dates: start: 20100505
  62. VECURONIUM [Concomitant]
     Active Substance: VECURONIUM BROMIDE
     Dates: start: 20130722

REACTIONS (6)
  - Renal failure [Unknown]
  - Acute kidney injury [Not Recovered/Not Resolved]
  - Chronic kidney disease [Not Recovered/Not Resolved]
  - Renal impairment [Unknown]
  - End stage renal disease [Unknown]
  - Nephrogenic anaemia [Unknown]

NARRATIVE: CASE EVENT DATE: 2013
